FAERS Safety Report 15738913 (Version 1)
Quarter: 2018Q4

REPORT INFORMATION
  Report Type: Spontaneous
  Country: NL (occurrence: NL)
  Receive Date: 20181219
  Receipt Date: 20181219
  Transmission Date: 20190205
  Serious: Yes (Death)
  Sender: FDA-Public Use
  Company Number: NL-MYLANLABS-2018M1091533

PATIENT
  Age: 52 Year
  Sex: Female

DRUGS (6)
  1. ETHINYLESTRADIOL W/LEVONORGESTREL [Suspect]
     Active Substance: ETHINYL ESTRADIOL\LEVONORGESTREL
     Indication: MENOMETRORRHAGIA
     Route: 048
  2. SALINE                             /00075401/ [Concomitant]
     Active Substance: SODIUM CHLORIDE
     Dosage: 0.09 % TUMESCENT PHLEBECTOMY SOLUTION
     Route: 065
  3. POLIDOCANOL. [Concomitant]
     Active Substance: POLIDOCANOL
     Dosage: POLIDOCANOL 3% AND 4ML AIR; TUMESCENT PHLEBECTOMY SOLUTION
     Route: 065
  4. PROPRANOLOL [Suspect]
     Active Substance: PROPRANOLOL HYDROCHLORIDE
     Indication: MIGRAINE
     Route: 065
  5. EPINEPHRINE. [Concomitant]
     Active Substance: EPINEPHRINE
     Dosage: 1:200,000; TUMESCENT PHLEBECTOMY SOLUTION
     Route: 065
  6. LIDOCAINE. [Concomitant]
     Active Substance: LIDOCAINE
     Dosage: TUMESCENT PHLEBECTOMY SOLUTION
     Route: 065

REACTIONS (2)
  - Pulmonary embolism [Fatal]
  - Cardiac arrest [Fatal]
